FAERS Safety Report 18414011 (Version 1)
Quarter: 2020Q4

REPORT INFORMATION
  Report Type: Spontaneous
  Country: KR (occurrence: KR)
  Receive Date: 20201022
  Receipt Date: 20201022
  Transmission Date: 20210114
  Serious: Yes (Other)
  Sender: FDA-Public Use
  Company Number: KR-SA-2020SA294811

PATIENT

DRUGS (2)
  1. MYOZYME [Suspect]
     Active Substance: ALGLUCOSIDASE ALFA
     Indication: GLYCOGEN STORAGE DISEASE TYPE II
     Dosage: UNK
     Route: 042
     Dates: start: 2008, end: 202001
  2. MYOZYME [Suspect]
     Active Substance: ALGLUCOSIDASE ALFA
     Dosage: UNK
     Route: 042
     Dates: start: 202007

REACTIONS (12)
  - Dysarthria [Unknown]
  - Muscle atrophy [Unknown]
  - Muscular weakness [Unknown]
  - Condition aggravated [Recovered/Resolved]
  - Fatigue [Unknown]
  - Supraventricular tachycardia [Recovered/Resolved]
  - Condition aggravated [Unknown]
  - Scoliosis [Unknown]
  - Dyspnoea [Recovering/Resolving]
  - Cardiac dysfunction [Unknown]
  - Motor dysfunction [Unknown]
  - Exercise tolerance decreased [Unknown]

NARRATIVE: CASE EVENT DATE: 2011
